FAERS Safety Report 13856331 (Version 2)
Quarter: 2017Q3

REPORT INFORMATION
  Report Type: Spontaneous
  Country: US (occurrence: US)
  Receive Date: 20170810
  Receipt Date: 20170905
  Transmission Date: 20171127
  Serious: Yes (Other)
  Sender: FDA-Public Use
  Company Number: US-AKORN PHARMACEUTICALS-2017AKN00968

PATIENT
  Age: 19 Year
  Sex: Male
  Weight: 79.37 kg

DRUGS (2)
  1. MYORISAN [Suspect]
     Active Substance: ISOTRETINOIN
     Indication: ACNE CYSTIC
     Dosage: 40 MG, 1X/DAY
     Route: 048
     Dates: start: 20170622, end: 20170726
  2. MYORISAN [Suspect]
     Active Substance: ISOTRETINOIN
     Indication: ACNE

REACTIONS (7)
  - Pharyngitis [Unknown]
  - Chills [Unknown]
  - Dysphagia [Recovering/Resolving]
  - Depression [Not Recovered/Not Resolved]
  - Chest pain [Unknown]
  - Dry skin [Recovered/Resolved]
  - Lip dry [Recovered/Resolved]

NARRATIVE: CASE EVENT DATE: 20170625
